FAERS Safety Report 24575927 (Version 2)
Quarter: 2024Q4

REPORT INFORMATION
  Report Type: Spontaneous
  Country: HR (occurrence: HR)
  Receive Date: 20241104
  Receipt Date: 20241105
  Transmission Date: 20250114
  Serious: Yes (Hospitalization, Other)
  Sender: MERCK
  Company Number: None

PATIENT
  Age: 77 Year
  Sex: Female
  Weight: 80 kg

DRUGS (9)
  1. KEYTRUDA [Suspect]
     Active Substance: PEMBROLIZUMAB
     Indication: Breast cancer female
     Route: 042
     Dates: start: 20240416, end: 20240716
  2. PACLITAXEL [Concomitant]
     Active Substance: PACLITAXEL
     Indication: Breast cancer female
     Route: 042
  3. PANTOPRAZOL APTAPHARMA [Concomitant]
     Indication: Chemotherapy side effect prophylaxis
     Route: 042
  4. PANTOPRAZOL APTAPHARMA [Concomitant]
     Indication: Gastritis prophylaxis
  5. SYNOPSIS [Concomitant]
     Indication: Chemotherapy side effect prophylaxis
     Dosage: UNK
     Route: 042
  6. DEXAMETHASONE KRKA [DEXAMETHASONE] [Concomitant]
     Indication: Chemotherapy side effect prophylaxis
     Dosage: UNK
     Route: 042
  7. ONDANSETRON [Concomitant]
     Active Substance: ONDANSETRON
     Indication: Chemotherapy side effect prophylaxis
     Dosage: UNK
     Route: 042
  8. NORMABEL [Concomitant]
     Active Substance: DIAZEPAM
     Indication: Chemotherapy side effect prophylaxis
     Dosage: UNK
     Route: 048
  9. ZOMETA [Concomitant]
     Active Substance: ZOLEDRONIC ACID
     Indication: Chemotherapy side effect prophylaxis
     Dosage: UNK
     Route: 042

REACTIONS (3)
  - Hepatitis acute [Recovered/Resolved]
  - Mixed liver injury [Recovered/Resolved]
  - Hyperbilirubinaemia [Recovered/Resolved]

NARRATIVE: CASE EVENT DATE: 20240716
